FAERS Safety Report 22292919 (Version 3)
Quarter: 2024Q3

REPORT INFORMATION
  Report Type: Spontaneous
  Country: BR (occurrence: BR)
  Receive Date: 20230508
  Receipt Date: 20240903
  Transmission Date: 20241016
  Serious: Yes (Death, Hospitalization, Other)
  Sender: CELLTRION
  Company Number: BR-CELLTRION INC.-2023BR003136

PATIENT

DRUGS (2)
  1. INFLIXIMAB [Suspect]
     Active Substance: INFLIXIMAB
     Indication: Crohn^s disease
     Dosage: 4 AMPOULES OF REMSIMA EVERY 8 WEEKS
     Route: 042
  2. INFLIXIMAB [Suspect]
     Active Substance: INFLIXIMAB
     Dosage: 4 AMPOULES OF REMSIMA EVERY 8 WEEKS
     Route: 042

REACTIONS (12)
  - Sepsis [Fatal]
  - Therapeutic response changed [Fatal]
  - Perforation [Unknown]
  - Ascites [Unknown]
  - Fistula [Unknown]
  - Malnutrition [Unknown]
  - Pleural effusion [Unknown]
  - Abdominal pain [Unknown]
  - Drug-induced liver injury [Unknown]
  - Pyrexia [Unknown]
  - Tuberculosis [Unknown]
  - Diarrhoea [Unknown]
